FAERS Safety Report 8439317-2 (Version None)
Quarter: 2012Q2

REPORT INFORMATION
  Report Type: 
  Country: None (occurrence: None)
  Receive Date: 20120615
  Receipt Date: 20120612
  Transmission Date: 20120825
  Serious: Yes (Death, Other)
  Sender: FDA-Public Use
  Company Number: PHEH2008US02622

PATIENT
  Sex: Female
  Weight: 63.492 kg

DRUGS (46)
  1. CEPHALEXIN [Concomitant]
     Dosage: 500 MG, UNK
     Route: 048
  2. ACYCLOVIR [Concomitant]
     Dosage: 800 MG, BID
  3. LUNESTA [Concomitant]
     Dosage: 2 MG, QD
     Route: 048
  4. NEURONTIN [Concomitant]
     Dosage: 800 MG, UNK
     Route: 048
  5. METHOCARBAMOL [Concomitant]
     Dosage: 500 MG, UNK
     Route: 048
  6. INTERFERON [Concomitant]
     Dates: start: 19990801
  7. REVLIMID [Concomitant]
  8. VITAMIN B6 [Concomitant]
  9. PERCOCET [Concomitant]
  10. POTASSIUM ACETATE [Concomitant]
     Dosage: 200 MEQ, QD
     Route: 048
  11. LYRICA [Concomitant]
     Dosage: 150 MG, UNK
     Route: 048
  12. CELEBREX [Concomitant]
     Dosage: 200 MG, UNK
     Route: 048
  13. ASPIRIN [Concomitant]
  14. AREDIA [Suspect]
     Dates: start: 19990801
  15. HYDROMORPHONE [Concomitant]
     Dosage: 4 MG, PRN
  16. VELCADE [Concomitant]
     Dates: start: 20070801, end: 20071001
  17. MELPHALAN HYDROCHLORIDE [Concomitant]
  18. PROCHLORPERAZINE [Concomitant]
     Dosage: 10 MG, UNK
     Route: 048
  19. THALIDOMIDE [Concomitant]
     Dates: start: 20010101, end: 20030201
  20. FLEXERIL [Concomitant]
     Dosage: 10 MG,
  21. AMOXICILLIN [Concomitant]
     Dosage: 500 MG, TID
  22. FLUCONAZOLE [Concomitant]
     Dosage: 200 MG, DAILY
  23. LEVAQUIN [Concomitant]
     Dosage: 500 MG, UNK
     Route: 048
  24. LOVASTATIN [Concomitant]
     Dosage: 40 MG, UNK
     Route: 048
  25. LIDODERM [Concomitant]
     Route: 062
  26. NEXIUM [Concomitant]
     Dosage: 40 MG, UNK
     Route: 048
  27. NEURONTIN [Concomitant]
     Dosage: 300 MG, UNK
     Route: 048
  28. VIOXX [Concomitant]
     Dosage: 25 MG, UNK
     Route: 048
  29. FAMVIR                                  /NET/ [Concomitant]
     Dosage: 500 MG, UNK
     Route: 048
  30. FLUDARABINE PHOSPHATE [Concomitant]
  31. LEVOTHYROXINE SODIUM [Concomitant]
  32. OXYCONTIN [Concomitant]
     Dosage: 40 MG, BID
  33. CHLORHEXIDINE DENTAL ^ACO^ [Concomitant]
     Route: 048
  34. DEXAMETHAZONE-PIX [Concomitant]
     Dosage: 4 MG, UNK
     Route: 048
  35. AZITHROMYCIN [Concomitant]
     Dosage: 250 MG, UNK
     Route: 048
  36. PENICILLIN VK [Concomitant]
     Dosage: 500 MG, UNK
     Route: 048
  37. AMBIEN [Concomitant]
     Dosage: 5 MG, UNK
     Route: 048
  38. AMITRIPTYLINE HCL [Concomitant]
     Dosage: 50 MG, UNK
     Route: 048
  39. THALOMID [Concomitant]
     Dosage: 50 MG, UNK
     Route: 048
  40. ZANTAC [Concomitant]
  41. NORCO [Concomitant]
  42. ZOMETA [Suspect]
     Dates: start: 20030801, end: 20041101
  43. COUMADIN [Concomitant]
  44. OXYCODONE HCL [Concomitant]
  45. GABAPENTIN [Concomitant]
     Dosage: 300 MG, UNK
     Route: 048
  46. LISINOPRIL [Concomitant]
     Dosage: 5 MG, UNK
     Route: 048

REACTIONS (79)
  - AORTIC ARTERIOSCLEROSIS [None]
  - TOOTH LOSS [None]
  - EMOTIONAL DISTRESS [None]
  - MONOCYTOSIS [None]
  - PYELONEPHRITIS [None]
  - LEFT VENTRICULAR HYPERTROPHY [None]
  - GASTRITIS [None]
  - SEROMA [None]
  - ANAEMIA OF CHRONIC DISEASE [None]
  - ATELECTASIS [None]
  - FLUID OVERLOAD [None]
  - HYPERLIPIDAEMIA [None]
  - INFECTION [None]
  - PAIN IN EXTREMITY [None]
  - DEFORMITY [None]
  - OSTEOPOROSIS [None]
  - NEOPLASM MALIGNANT [None]
  - INTERVERTEBRAL DISC DISORDER [None]
  - PHLEBITIS [None]
  - ASTHENIA [None]
  - CAROTID ARTERY STENOSIS [None]
  - ILIAC ARTERY THROMBOSIS [None]
  - PARAPARESIS [None]
  - HEPATIC MASS [None]
  - TRICUSPID VALVE INCOMPETENCE [None]
  - PULMONARY HYPERTENSION [None]
  - RIB FRACTURE [None]
  - PLEURAL EFFUSION [None]
  - PAIN [None]
  - HYPOAESTHESIA [None]
  - NERVOUSNESS [None]
  - MITRAL VALVE INCOMPETENCE [None]
  - RIGHT VENTRICULAR SYSTOLIC PRESSURE INCREASED [None]
  - FALL [None]
  - HEPATIC LESION [None]
  - METASTASES TO LIVER [None]
  - RENAL FAILURE CHRONIC [None]
  - BREAST TENDERNESS [None]
  - VISION BLURRED [None]
  - DYSURIA [None]
  - OSTEONECROSIS OF JAW [None]
  - LERICHE SYNDROME [None]
  - SKULL MALFORMATION [None]
  - PARAESTHESIA [None]
  - DECREASED APPETITE [None]
  - BLADDER SPASM [None]
  - EJECTION FRACTION DECREASED [None]
  - DERMAL CYST [None]
  - ABDOMINAL TENDERNESS [None]
  - PNEUMONIA [None]
  - VISUAL ACUITY REDUCED [None]
  - DEATH [None]
  - PERIPHERAL VASCULAR DISORDER [None]
  - OSTEOPENIA [None]
  - THIRST [None]
  - WOUND DEHISCENCE [None]
  - CARDIAC FAILURE CONGESTIVE [None]
  - FOOT FRACTURE [None]
  - VENTRICULAR DYSKINESIA [None]
  - EPIDERMAL NAEVUS [None]
  - OSTEOMYELITIS CHRONIC [None]
  - PLASMACYTOMA [None]
  - HIP FRACTURE [None]
  - OSTEOARTHRITIS [None]
  - ACTINIC KERATOSIS [None]
  - CHEST PAIN [None]
  - PURULENCE [None]
  - ANXIETY [None]
  - NEUROPATHY PERIPHERAL [None]
  - JOINT EFFUSION [None]
  - EYE PAIN [None]
  - BONE LESION [None]
  - SPINAL FRACTURE [None]
  - CONSTIPATION [None]
  - BONE PAIN [None]
  - DYSPNOEA [None]
  - CARDIAC ANEURYSM [None]
  - PERICARDIAL EFFUSION [None]
  - CARDIOMEGALY [None]
